FAERS Safety Report 6544178-2 (Version None)
Quarter: 2010Q1

REPORT INFORMATION
  Report Type: 
  Country: None (occurrence: None)
  Receive Date: 20100119
  Receipt Date: 20100119
  Transmission Date: 20100710
  Serious: Yes (Other)
  Sender: FDA-Public Use
  Company Number: None

PATIENT
  Sex: Female

DRUGS (2)
  1. TYLENOL SINUS CONGESTION + PAIN RAPID RELEASE 325MG  MCNEIL [Suspect]
     Indication: SINUS CONGESTION
     Dosage: 2 GELCAPS EVERY4 HOURS PO
     Route: 048
     Dates: start: 20091231, end: 20100102
  2. TYLENOL SINUS CONGESTION + PAIN RAPID RELEASE 325MG  MCNEIL [Suspect]
     Indication: SINUS HEADACHE
     Dosage: 2 GELCAPS EVERY4 HOURS PO
     Route: 048
     Dates: start: 20091231, end: 20100102

REACTIONS (9)
  - ABDOMINAL PAIN UPPER [None]
  - DEHYDRATION [None]
  - DIARRHOEA [None]
  - EATING DISORDER [None]
  - FATIGUE [None]
  - MALAISE [None]
  - NAUSEA [None]
  - PRODUCT QUALITY ISSUE [None]
  - VOMITING [None]
